FAERS Safety Report 24793481 (Version 1)
Quarter: 2024Q4

REPORT INFORMATION
  Report Type: Spontaneous
  Country: US (occurrence: US)
  Receive Date: 20241231
  Receipt Date: 20241231
  Transmission Date: 20250115
  Serious: Yes (Other)
  Sender: AMGEN
  Company Number: US-AMGEN-USASP2024253645

PATIENT
  Sex: Female

DRUGS (2)
  1. RAVICTI [Suspect]
     Active Substance: GLYCEROL PHENYLBUTYRATE
     Indication: Amino acid metabolism disorder
     Dosage: 5 MILLILITER, TID (1.1 GRAMS/ML(25ML) WITH MEALS
     Route: 048
  2. RAVICTI [Suspect]
     Active Substance: GLYCEROL PHENYLBUTYRATE
     Dosage: 5 MILLILITER, TID (1.1 GRAMS/ML/25ML) WITH MEALS
     Route: 048

REACTIONS (1)
  - Ankle fracture [Unknown]
